FAERS Safety Report 5559808-1 (Version None)
Quarter: 2007Q4

REPORT INFORMATION
  Report Type: 
  Country: None (occurrence: None)
  Receive Date: 20071214
  Receipt Date: 20071017
  Transmission Date: 20080405
  Serious: No
  Sender: FDA-Public Use
  Company Number: US-ABBOTT-07P-163-0421051-00

PATIENT
  Sex: Female
  Weight: 99.426 kg

DRUGS (8)
  1. HUMIRA [Suspect]
     Indication: PSORIATIC ARTHROPATHY
     Route: 058
     Dates: start: 20070808
  2. DULOXETINE HYDROCHLORIDE [Concomitant]
     Indication: DEPRESSION
     Route: 048
  3. LITHIUM CARBONATE [Concomitant]
     Indication: BIPOLAR DISORDER
     Route: 048
  4. LITHIUM CARBONATE [Concomitant]
     Indication: MOOD SWINGS
  5. CLONAZEPAM [Concomitant]
     Indication: DRUG USE FOR UNKNOWN INDICATION
     Route: 048
  6. FEXOFENADINE [Concomitant]
     Indication: SEASONAL ALLERGY
     Route: 048
  7. ESOMEPRAZOLE MAGNESIUM [Concomitant]
     Indication: GASTROOESOPHAGEAL REFLUX DISEASE
     Route: 048
  8. MOMETASONE FUROATE [Concomitant]
     Indication: SEASONAL ALLERGY
     Route: 045

REACTIONS (5)
  - CHEST DISCOMFORT [None]
  - INJECTION SITE RASH [None]
  - INJECTION SITE REACTION [None]
  - OEDEMA PERIPHERAL [None]
  - RASH PRURITIC [None]
